FAERS Safety Report 6049240-9 (Version None)
Quarter: 2009Q1

REPORT INFORMATION
  Report Type: 
  Country: None (occurrence: None)
  Receive Date: 20090123
  Receipt Date: 20090119
  Transmission Date: 20090719
  Serious: Yes (Other)
  Sender: FDA-Public Use
  Company Number: CR-ABBOTT-09P-039-0498740-00

PATIENT
  Age: 73 Year
  Sex: Male

DRUGS (5)
  1. HUMIRA [Suspect]
     Indication: CROHN'S DISEASE
     Route: 058
     Dates: start: 20081030
  2. COREG [Concomitant]
     Indication: CORONARY ARTERY DISEASE
  3. COREG [Concomitant]
     Indication: HYPERTENSION
  4. CRESTOR [Concomitant]
     Indication: LIPIDS ABNORMAL
  5. SULFASALAZINE [Concomitant]
     Indication: CROHN'S DISEASE

REACTIONS (1)
  - PROTEINURIA [None]
